FAERS Safety Report 6063220-9 (Version None)
Quarter: 2009Q1

REPORT INFORMATION
  Report Type: 
  Country: None (occurrence: None)
  Receive Date: 20090203
  Receipt Date: 20090122
  Transmission Date: 20090719
  Serious: Yes (Other)
  Sender: FDA-Public Use
  Company Number: US-PFIZER INC-2009150991

PATIENT
  Sex: Female
  Weight: 68.934 kg

DRUGS (7)
  1. CHANTIX [Suspect]
     Indication: SMOKING CESSATION THERAPY
     Dosage: 1 MG, 2X/DAY
     Route: 048
     Dates: start: 20080501, end: 20080501
  2. LEXAPRO [Concomitant]
     Indication: BIPOLAR DISORDER
     Dosage: UNK
  3. PAXIL [Concomitant]
     Indication: BIPOLAR DISORDER
     Dosage: UNK
  4. KLONOPIN [Concomitant]
     Indication: BIPOLAR DISORDER
     Dosage: UNK
  5. MORPHINE [Concomitant]
     Indication: PAIN
     Dosage: UNK
  6. RANITIDINE [Concomitant]
     Indication: GASTRIC DISORDER
     Dosage: UNK
  7. ALL OTHER THERAPEUTIC PRODUCTS [Concomitant]
     Indication: PAIN
     Dosage: UNK

REACTIONS (2)
  - LOSS OF CONSCIOUSNESS [None]
  - SUICIDAL IDEATION [None]
